FAERS Safety Report 24052492 (Version 1)
Quarter: 2024Q3

REPORT INFORMATION
  Report Type: Spontaneous
  Country: IT (occurrence: IT)
  Receive Date: 20240705
  Receipt Date: 20240705
  Transmission Date: 20241017
  Serious: Yes (Other)
  Sender: TEVA
  Company Number: None

PATIENT
  Age: 75 Year
  Sex: Female

DRUGS (1)
  1. CARBOPLATIN [Suspect]
     Active Substance: CARBOPLATIN
     Indication: Vaginal adenocarcinoma
     Dosage: 316 MG TOTAL DOSE EVERY 21 DAYS,?SOLUTION FOR INFUSION
     Route: 042
     Dates: start: 20240320, end: 20240411

REACTIONS (3)
  - Hypoxia [Recovered/Resolved]
  - Erythema [Recovered/Resolved]
  - Hypotension [Recovered/Resolved]

NARRATIVE: CASE EVENT DATE: 20240411
